FAERS Safety Report 16609882 (Version 1)
Quarter: 2019Q3

REPORT INFORMATION
  Report Type: Spontaneous
  Country: DE (occurrence: DE)
  Receive Date: 20190722
  Receipt Date: 20190722
  Transmission Date: 20191004
  Serious: Yes (Hospitalization)
  Sender: FDA-Public Use
  Company Number: DE-TEVA-2019-DE-1079816

PATIENT
  Age: 65 Year
  Sex: Male

DRUGS (1)
  1. IBUPROFEN. [Suspect]
     Active Substance: IBUPROFEN
     Dosage: 400 MG, 1 TBL. TGL. FOR 1-2 YEARS

REACTIONS (4)
  - Memory impairment [Unknown]
  - Decreased appetite [Unknown]
  - Renal impairment [Unknown]
  - Weight decreased [Unknown]
